FAERS Safety Report 7686756-3 (Version None)
Quarter: 2011Q3

REPORT INFORMATION
  Report Type: 
  Country: None (occurrence: None)
  Receive Date: 20110816
  Receipt Date: 20110804
  Transmission Date: 20111222
  Serious: No
  Sender: FDA-Public Use
  Company Number: US-B.I. PHARMACEUTICALS,INC./RIDGEFIELD-2011-BP-19258BP

PATIENT
  Age: 78 Year
  Sex: Male

DRUGS (13)
  1. FLOMAX [Concomitant]
     Indication: PROSTATOMEGALY
     Dosage: 0.4 MG
  2. ZANTAC 150 [Suspect]
     Indication: GASTROOESOPHAGEAL REFLUX DISEASE
     Dosage: 150 MG
     Route: 048
     Dates: start: 20110804, end: 20110804
  3. CITRUCEL [Concomitant]
  4. AVODART [Concomitant]
     Indication: PROSTATOMEGALY
  5. ATENOLOL [Concomitant]
     Indication: HYPERTENSION
     Dosage: 50 MG
  6. POLYETHYLENE GLYCOL [Concomitant]
  7. FENTANYL-100 [Concomitant]
     Indication: BACK PAIN
     Route: 062
  8. PANTOPRAZOLE [Concomitant]
     Indication: GASTROOESOPHAGEAL REFLUX DISEASE
  9. LISINOPRIL [Concomitant]
     Indication: HYPERTENSION
     Dosage: 10 MG
  10. CITALOPRAM HYDROBROMIDE [Concomitant]
     Indication: DEPRESSION
     Dosage: 10 MG
  11. OXYCODONE HCL [Concomitant]
     Indication: BACK PAIN
     Dosage: 30 MG
  12. CITALOPRAM HYDROBROMIDE [Concomitant]
     Indication: ANXIETY
  13. GABAPENTIN [Concomitant]
     Indication: NEURALGIA
     Dosage: 1800 MG

REACTIONS (3)
  - HOT FLUSH [None]
  - PRURITUS [None]
  - RASH GENERALISED [None]
